FAERS Safety Report 9190615 (Version 2)
Quarter: 2013Q2

REPORT INFORMATION
  Report Type: Spontaneous
  Country: KR (occurrence: None)
  Receive Date: 20130322
  Receipt Date: 20130411
  Transmission Date: 20140414
  Serious: Yes (Hospitalization, Other)
  Sender: FDA-Public Use
  Company Number: JP-2011-10259

PATIENT
  Age: 72 Year
  Sex: Male

DRUGS (11)
  1. OPC-13013 (CILOSTAZOL) TABLET [Suspect]
     Route: 048
     Dates: start: 20110105, end: 20110112
  2. PROBUCOL [Suspect]
     Route: 048
     Dates: start: 20110105, end: 20110208
  3. ASPIRIN (ACETYLSALICYLIC ACID) [Concomitant]
  4. CRESTOR (ROSUVASTATIN CALCIUM) [Concomitant]
  5. SEVIKAR (AMLODIPINE BESILATE, OLMESARTAN MEDOXOMIL) [Concomitant]
  6. DOXAZOCIN (DOXAZOSIN MESILATE) [Concomitant]
  7. THIOCTACID [Concomitant]
  8. BETAC (BETAXOLOL HYDROCHLORIDE) [Concomitant]
  9. ELOTON (ISOSORBIDE MONONITRATE) [Concomitant]
  10. PANID (INDAPAMIDE) [Concomitant]
  11. METFAMIN [Concomitant]

REACTIONS (4)
  - Face oedema [None]
  - Oedema peripheral [None]
  - Vascular pseudoaneurysm [None]
  - Peripheral ischaemia [None]
